FAERS Safety Report 9841349 (Version 1)
Quarter: 2013Q4

REPORT INFORMATION
  Report Type: Spontaneous
  Country: US (occurrence: None)
  Receive Date: 20131212
  Receipt Date: 20131212
  Transmission Date: 20140711
  Serious: Yes (Hospitalization)
  Sender: FDA-Public Use
  Company Number: 20121115CINRY3769

PATIENT
  Age: 43 Year
  Sex: 0

DRUGS (2)
  1. CINRYZE (C1 ESTERASE INHIBITOR (HUMAN)) (500 UNIT, INJECTION FOR INFUSION) (C1 ESTERASE INHIBITOR (HUMAN)) [Suspect]
     Indication: HEREDITARY ANGIOEDEMA
     Dosage: 3000 UNIT, 1 IN 1 D, INTRAVENOUS
     Route: 042
     Dates: start: 20111125
  2. CINRYZE (C1 ESTERASE INHIBITOR (HUMAN)) (500 UNIT, INJECTION FOR INFUSION) (C1 ESTERASE INHIBITOR (HUMAN)) [Suspect]
     Indication: PROPHYLAXIS
     Dosage: 3000 UNIT, 1 IN 1 D, INTRAVENOUS
     Route: 042
     Dates: start: 20111125

REACTIONS (2)
  - Hereditary angioedema [None]
  - Prescribed overdose [None]
